FAERS Safety Report 4278700-6 (Version None)
Quarter: 2004Q1

REPORT INFORMATION
  Report Type: 
  Country: None (occurrence: None)
  Receive Date: 20040122
  Receipt Date: 20040107
  Transmission Date: 20041129
  Serious: Yes (Hospitalization)
  Sender: FDA-Public Use
  Company Number: US012605

PATIENT
  Age: 59 Year
  Sex: Female
  Weight: 56.246 kg

DRUGS (2)
  1. ACTIQ [Suspect]
     Indication: CANCER PAIN
     Dosage: 1200 UG Q2HR BUCCAL
     Route: 002
     Dates: start: 20010101
  2. MS CONTIN [Concomitant]

REACTIONS (3)
  - MOUTH HAEMORRHAGE [None]
  - PAROTITIS [None]
  - STOMATITIS [None]
